FAERS Safety Report 9591007 (Version 1)
Quarter: 2013Q4

REPORT INFORMATION
  Report Type: Spontaneous
  Country: US (occurrence: US)
  Receive Date: 20131003
  Receipt Date: 20131003
  Transmission Date: 20140711
  Serious: No
  Sender: FDA-Public Use
  Company Number: US-AMGEN-USASP2012080137

PATIENT
  Sex: Female
  Weight: 65.76 kg

DRUGS (5)
  1. ENBREL [Suspect]
     Indication: PRODUCT USED FOR UNKNOWN INDICATION
     Dosage: UNK
  2. SULFASALAZINE [Concomitant]
     Dosage: UNK
  3. NABUMETON [Concomitant]
     Dosage: UNK
  4. MULTIVITAMINS [Concomitant]
     Dosage: UNK
  5. VITAMIN B12                        /00056201/ [Concomitant]
     Dosage: UNK

REACTIONS (1)
  - Lupus-like syndrome [Unknown]
